FAERS Safety Report 15389585 (Version 2)
Quarter: 2018Q4

REPORT INFORMATION
  Report Type: Spontaneous
  Country: IN (occurrence: IN)
  Receive Date: 20180917
  Receipt Date: 20180917
  Transmission Date: 20190204
  Serious: No
  Sender: FDA-Public Use
  Company Number: IN-LUPIN LIMITED-2018-01371

PATIENT
  Age: 107 Day
  Sex: Male

DRUGS (1)
  1. CETIL INJ DRY VIAL 250 MG (CEFUROXIME AXETIL) [Suspect]
     Active Substance: CEFUROXIME AXETIL
     Indication: COUGH
     Dosage: ONE DOSE, QD (ONCE A DAY FOR 7 DAYS)
     Route: 065
     Dates: start: 20180218

REACTIONS (2)
  - Vomiting [Recovered/Resolved]
  - Somnolence [Unknown]

NARRATIVE: CASE EVENT DATE: 20180222
